FAERS Safety Report 22098717 (Version 7)
Quarter: 2024Q1

REPORT INFORMATION
  Report Type: Report from Study
  Country: JP (occurrence: JP)
  Receive Date: 20230315
  Receipt Date: 20240222
  Transmission Date: 20240410
  Serious: Yes (Other)
  Sender: FDA-Public Use
  Company Number: JP-ASTELLAS-2023JP002901

PATIENT
  Age: 74 Year
  Sex: Male

DRUGS (11)
  1. ENFORTUMAB VEDOTIN [Suspect]
     Active Substance: ENFORTUMAB VEDOTIN
     Indication: Transitional cell carcinoma
     Dosage: 1.25 MG/KG, 3 TIMES A MONTH
     Route: 041
     Dates: start: 20220209, end: 20220209
  2. ENFORTUMAB VEDOTIN [Suspect]
     Active Substance: ENFORTUMAB VEDOTIN
     Dosage: 1.25 MG/KG, 3 TIMES A MONTH
     Route: 041
     Dates: start: 20220224, end: 20220324
  3. ENFORTUMAB VEDOTIN [Suspect]
     Active Substance: ENFORTUMAB VEDOTIN
     Dosage: 1.25 MG/KG, 3 TIMES A MONTH
     Route: 041
     Dates: start: 20221213, end: 20221213
  4. ENFORTUMAB VEDOTIN [Suspect]
     Active Substance: ENFORTUMAB VEDOTIN
     Dosage: 0.5 MG/KG, CONTINUED WITH DRUG INTERRUPTION
     Route: 041
     Dates: start: 20230124, end: 20230124
  5. ENFORTUMAB VEDOTIN [Suspect]
     Active Substance: ENFORTUMAB VEDOTIN
     Dosage: 0.5 MG/KG, CONTINUED WITH DRUG INTERRUPTION
     Route: 041
     Dates: start: 20230207, end: 20230207
  6. ENFORTUMAB VEDOTIN [Suspect]
     Active Substance: ENFORTUMAB VEDOTIN
     Dosage: 0.5 MG/KG, CONTINUED WITH DRUG INTERRUPTION
     Route: 041
     Dates: start: 20230221, end: 20230221
  7. ENFORTUMAB VEDOTIN [Suspect]
     Active Substance: ENFORTUMAB VEDOTIN
     Dosage: 0.5 MG/KG, UNKNOWN FREQ.
     Route: 041
  8. ENFORTUMAB VEDOTIN [Suspect]
     Active Substance: ENFORTUMAB VEDOTIN
     Dosage: 0.5 MG/KG, 3 TIMES A MONTH
     Route: 041
     Dates: start: 20230328
  9. CLOBETASOL PROPIONATE [Concomitant]
     Active Substance: CLOBETASOL PROPIONATE
     Indication: Cutaneous symptom
     Dosage: APPROPRIATE AMOUNT, ONCE DAILY
     Route: 061
     Dates: start: 20220331, end: 20220414
  10. RUPAFIN [Concomitant]
     Active Substance: RUPATADINE FUMARATE
     Indication: Cutaneous symptom
     Route: 048
     Dates: start: 20220331, end: 20220407
  11. BILASTINE [Concomitant]
     Active Substance: BILASTINE
     Indication: Cutaneous symptom
     Route: 048
     Dates: start: 20221220, end: 20230110

REACTIONS (3)
  - Cutaneous symptom [Recovered/Resolved]
  - Cutaneous symptom [Recovered/Resolved]
  - Hypoaesthesia [Recovered/Resolved]

NARRATIVE: CASE EVENT DATE: 20221220
